FAERS Safety Report 9306608 (Version 2)
Quarter: 2013Q4

REPORT INFORMATION
  Report Type: Spontaneous
  Country: DE (occurrence: DE)
  Receive Date: 20130523
  Receipt Date: 20131209
  Transmission Date: 20140711
  Serious: Yes (Hospitalization, Other)
  Sender: FDA-Public Use
  Company Number: DE-VERTEX PHARMACEUTICALS INC-2013-006354

PATIENT
  Sex: 0

DRUGS (6)
  1. INCIVO [Suspect]
     Indication: HEPATITIS C
     Route: 048
  2. INCIVO [Suspect]
     Route: 048
  3. RIBAVIRIN [Suspect]
     Indication: HEPATITIS C
     Dosage: UNK
     Route: 065
  4. RIBAVIRIN [Suspect]
     Dosage: UNK
     Route: 065
  5. RIBAVIRIN [Suspect]
     Dosage: UNK
     Route: 065
  6. PEGINTERFERON ALFA [Suspect]
     Indication: HEPATITIS C
     Dosage: UNK
     Route: 065

REACTIONS (13)
  - Anaemia [Unknown]
  - Rash [Unknown]
  - Thrombocytopenia [Unknown]
  - Gastrointestinal disorder [Unknown]
  - Fatigue [Unknown]
  - Respiratory disorder [Unknown]
  - Influenza like illness [Unknown]
  - Dry skin [Unknown]
  - No therapeutic response [Unknown]
  - Pruritus [Unknown]
  - Anorectal discomfort [Unknown]
  - Viral load increased [Unknown]
  - Haemoglobin decreased [Unknown]
